FAERS Safety Report 4831541-0 (Version None)
Quarter: 2005Q4

REPORT INFORMATION
  Report Type: 
  Country: None (occurrence: None)
  Receive Date: 20051118
  Receipt Date: 20051108
  Transmission Date: 20060501
  Serious: Yes (Disabling)
  Sender: FDA-Public Use
  Company Number: CA-JNJFOC-20040601278

PATIENT
  Sex: Female
  Weight: 52 kg

DRUGS (8)
  1. REMICADE [Suspect]
     Indication: RHEUMATOID ARTHRITIS
     Route: 042
  2. PREVACID [Concomitant]
     Route: 048
  3. VIOXX [Concomitant]
  4. PREDNISONE [Concomitant]
     Route: 048
  5. DICLOFENAC [Concomitant]
     Route: 048
  6. FERROUS SULFATE TAB [Concomitant]
     Route: 048
  7. CALCIUM GLUCONATE [Concomitant]
     Route: 048
  8. ACTONEL [Concomitant]
     Route: 048

REACTIONS (12)
  - CHOLECYSTECTOMY [None]
  - DRUG INEFFECTIVE [None]
  - DYSPHASIA [None]
  - GASTRITIS EROSIVE [None]
  - GASTROOESOPHAGEAL REFLUX DISEASE [None]
  - HIATUS HERNIA [None]
  - MUSCULOSKELETAL CHEST PAIN [None]
  - ODYNOPHAGIA [None]
  - OESOPHAGEAL STENOSIS [None]
  - PNEUMONIA [None]
  - TACHYCARDIA [None]
  - WEIGHT DECREASED [None]
